FAERS Safety Report 25445670 (Version 3)
Quarter: 2025Q3

REPORT INFORMATION
  Report Type: Spontaneous
  Country: US (occurrence: US)
  Receive Date: 20250617
  Receipt Date: 20250717
  Transmission Date: 20251021
  Serious: No
  Sender: PFIZER
  Company Number: US-PFIZER INC-202500121721

PATIENT
  Age: 67 Year
  Sex: Female
  Weight: 102.51 kg

DRUGS (1)
  1. ELREXFIO [Suspect]
     Active Substance: ELRANATAMAB-BCMM
     Indication: Plasma cell myeloma
     Dates: start: 20250507

REACTIONS (6)
  - Rhinorrhoea [Unknown]
  - Sputum discoloured [Unknown]
  - Somnolence [Unknown]
  - Pyrexia [Unknown]
  - Fatigue [Unknown]
  - Off label use [Unknown]

NARRATIVE: CASE EVENT DATE: 20250507
